FAERS Safety Report 18059072 (Version 8)
Quarter: 2021Q2

REPORT INFORMATION
  Report Type: Spontaneous
  Country: ES (occurrence: ES)
  Receive Date: 20200723
  Receipt Date: 20210629
  Transmission Date: 20210717
  Serious: Yes (Life-Threatening, Hospitalization, Other)
  Sender: FDA-Public Use
  Company Number: NVSC2020ES206671

PATIENT
  Age: 56 Year
  Sex: Female

DRUGS (11)
  1. EMPAGLIFLOZIN [Suspect]
     Active Substance: EMPAGLIFLOZIN
     Indication: DIABETES MELLITUS
     Dosage: UNK
     Route: 065
  2. AMPHOTERICIN B. [Suspect]
     Active Substance: AMPHOTERICIN B
     Indication: CANDIDA INFECTION
     Dosage: UNK
     Route: 065
  3. PREDNISONE. [Suspect]
     Active Substance: PREDNISONE
     Indication: IMMUNOSUPPRESSANT DRUG THERAPY
  4. ENVARSUS XR [Suspect]
     Active Substance: TACROLIMUS
     Indication: RENAL TRANSPLANT
     Dosage: UNK
     Route: 065
  5. AMPHOTERICIN B. [Suspect]
     Active Substance: AMPHOTERICIN B
     Indication: EMPHYSEMATOUS PYELONEPHRITIS
  6. MYCOPHENOLATE MOFETIL. [Suspect]
     Active Substance: MYCOPHENOLATE MOFETIL
     Indication: IMMUNOSUPPRESSANT DRUG THERAPY
  7. PREDNISONE. [Suspect]
     Active Substance: PREDNISONE
     Indication: RENAL TRANSPLANT
     Dosage: UNK
     Route: 065
  8. ENVARSUS XR [Suspect]
     Active Substance: TACROLIMUS
     Indication: IMMUNOSUPPRESSANT DRUG THERAPY
  9. INSULIN [Concomitant]
     Active Substance: INSULIN NOS
     Indication: DIABETES MELLITUS
     Dosage: UNK
     Route: 065
  10. MEROPENEM. [Concomitant]
     Active Substance: MEROPENEM
     Indication: PRODUCT USED FOR UNKNOWN INDICATION
     Dosage: UNK
     Route: 065
  11. MYCOPHENOLATE MOFETIL. [Suspect]
     Active Substance: MYCOPHENOLATE MOFETIL
     Indication: RENAL TRANSPLANT
     Dosage: UNK
     Route: 065

REACTIONS (19)
  - Renal impairment [Unknown]
  - Vesicoureteric reflux [Unknown]
  - Urinary tract infection [Recovered/Resolved]
  - Candida infection [Recovering/Resolving]
  - Drug ineffective [Unknown]
  - Systemic candida [Recovered/Resolved]
  - Oliguria [Unknown]
  - Coagulopathy [Recovered/Resolved]
  - Pyelonephritis fungal [Recovering/Resolving]
  - Coagulation test abnormal [Recovered/Resolved]
  - Product use in unapproved indication [Unknown]
  - Urinary tract infection enterococcal [Recovered/Resolved]
  - Septic shock [Recovered/Resolved]
  - Perinephric abscess [Recovered/Resolved]
  - Emphysematous pyelonephritis [Recovering/Resolving]
  - Candida sepsis [Recovered/Resolved]
  - Hypotension [Unknown]
  - Urinary tract candidiasis [Recovered/Resolved]
  - Therapy non-responder [Unknown]
